FAERS Safety Report 6329469-2 (Version None)
Quarter: 2009Q3

REPORT INFORMATION
  Report Type: 
  Country: None (occurrence: None)
  Receive Date: 20090826
  Receipt Date: 20090818
  Transmission Date: 20100115
  Serious: Yes (Other)
  Sender: FDA-Public Use
  Company Number: GB-ELI_LILLY_AND_COMPANY-GB200908003765

PATIENT
  Age: 49 Year
  Sex: Female
  Weight: 58.6 kg

DRUGS (2)
  1. BYETTA [Suspect]
     Indication: DIABETES MELLITUS
     Dosage: 10 UG, UNKNOWN
     Route: 058
     Dates: start: 20090122
  2. CYCLOSPORINE [Concomitant]
     Indication: PSORIASIS
     Dosage: UNK, UNKNOWN
     Route: 048

REACTIONS (1)
  - GASTRIC ULCER [None]
